FAERS Safety Report 8146792-X (Version None)
Quarter: 2012Q1

REPORT INFORMATION
  Report Type: 
  Country: None (occurrence: None)
  Receive Date: 20120217
  Receipt Date: 20110801
  Transmission Date: 20120608
  Serious: No
  Sender: FDA-Public Use
  Company Number: US-ABBOTT-11P-163-0843302-00

PATIENT
  Sex: Male

DRUGS (2)
  1. SIMCOR [Suspect]
     Indication: HIGH DENSITY LIPOPROTEIN DECREASED
  2. SIMCOR [Suspect]
     Indication: LOW DENSITY LIPOPROTEIN INCREASED
     Dosage: 500/20MG
     Dates: start: 20110706

REACTIONS (6)
  - FATIGUE [None]
  - DRY MOUTH [None]
  - PAIN IN EXTREMITY [None]
  - FLUSHING [None]
  - DYSGEUSIA [None]
  - ABDOMINAL DISCOMFORT [None]
